FAERS Safety Report 10677879 (Version 8)
Quarter: 2020Q1

REPORT INFORMATION
  Report Type: Spontaneous
  Country: BR (occurrence: BR)
  Receive Date: 20141229
  Receipt Date: 20200316
  Transmission Date: 20200409
  Serious: Yes (Other)
  Sender: FDA-Public Use
  Company Number: BR-AMGEN-BRASP2014100458

PATIENT
  Age: 42 Year
  Sex: Female
  Weight: 59 kg

DRUGS (12)
  1. ENBREL [Suspect]
     Active Substance: ETANERCEPT
     Indication: PSORIATIC ARTHROPATHY
     Dosage: UNK
     Route: 065
  2. ENBREL [Suspect]
     Active Substance: ETANERCEPT
     Indication: PSORIATIC ARTHROPATHY
     Dosage: 50 MG, WEEKLY
     Route: 058
     Dates: start: 201306
  3. RIVOTRIL [Concomitant]
     Active Substance: CLONAZEPAM
     Dosage: 3 MG, 2X/DAY
     Dates: start: 201409
  4. ANTI INFLAMMATORY [Concomitant]
     Dosage: UNK
  5. PREDNISONE. [Concomitant]
     Active Substance: PREDNISONE
     Dosage: 5 MG, UNK
  6. PREDNISONE. [Concomitant]
     Active Substance: PREDNISONE
     Dosage: 5 MG, UNK
  7. ARAVA [Concomitant]
     Active Substance: LEFLUNOMIDE
     Dosage: 1 TABLET (20 MG), 1X/DAY
  8. ANTI INFLAMMATORY [Concomitant]
     Dosage: UNK
  9. ANTI INFLAMMATORY [Concomitant]
     Dosage: UNK
  10. ARAVA [Concomitant]
     Active Substance: LEFLUNOMIDE
     Dosage: 1 TABLET (20 MG), 1X/DAY
  11. PREDNISONE. [Concomitant]
     Active Substance: PREDNISONE
     Dosage: 5 MILLIGRAM
  12. ARAVA [Concomitant]
     Active Substance: LEFLUNOMIDE
     Dosage: 20 MILLIGRAM, QD

REACTIONS (30)
  - Fear [Unknown]
  - Acarodermatitis [Recovered/Resolved]
  - Product dispensing issue [Unknown]
  - Somnolence [Unknown]
  - Skin discolouration [Unknown]
  - Gait disturbance [Unknown]
  - Memory impairment [Unknown]
  - Influenza [Unknown]
  - Affective disorder [Unknown]
  - Arthralgia [Unknown]
  - Somnolence [Unknown]
  - Memory impairment [Unknown]
  - Pain [Unknown]
  - Dyspnoea [Unknown]
  - Viral infection [Unknown]
  - Device issue [Unknown]
  - Malaise [Unknown]
  - Depressed mood [Unknown]
  - Hypersensitivity [Unknown]
  - Drug hypersensitivity [Unknown]
  - Pneumonia [Unknown]
  - Fatigue [Unknown]
  - Affective disorder [Unknown]
  - Sinusitis [Unknown]
  - Drug dose omission by device [Unknown]
  - Irritability [Unknown]
  - Nervousness [Unknown]
  - Joint swelling [Unknown]
  - Hepatic pain [Unknown]
  - Incorrect disposal of product [Unknown]

NARRATIVE: CASE EVENT DATE: 201306
